FAERS Safety Report 14256269 (Version 1)
Quarter: 2017Q4

REPORT INFORMATION
  Report Type: Not Available
  Country: FR (occurrence: FR)
  Receive Date: 20171206
  Receipt Date: 20171206
  Transmission Date: 20180321
  Serious: Yes (Other)
  Sender: FDA-Public Use
  Company Number: FR-ANIPHARMA-2017-FR-000081

PATIENT
  Age: 61 Year
  Sex: Male

DRUGS (3)
  1. DIAZEPAM. [Suspect]
     Active Substance: DIAZEPAM
  2. METOCLOPRAMIDE (NON-SPECIFIC) [Suspect]
     Active Substance: METOCLOPRAMIDE
  3. ESCITALOPRAM [Suspect]
     Active Substance: ESCITALOPRAM OXALATE

REACTIONS (1)
  - Electrocardiogram QT prolonged [Unknown]
